FAERS Safety Report 6078557-7 (Version None)
Quarter: 2009Q1

REPORT INFORMATION
  Report Type: 
  Country: None (occurrence: None)
  Receive Date: 20090212
  Receipt Date: 20081220
  Transmission Date: 20090719
  Serious: Yes (Disabling, Other)
  Sender: FDA-Public Use
  Company Number: 2009AL000722

PATIENT
  Age: 85 Year
  Sex: Male

DRUGS (3)
  1. AMLODIPINE BESYLATE [Suspect]
     Indication: BLOOD PRESSURE INCREASED
     Dosage: 10 MG; PO
     Route: 048
     Dates: start: 20081210, end: 20090105
  2. FELODIPINE [Concomitant]
  3. LISINOPRIL [Concomitant]

REACTIONS (1)
  - PEMPHIGOID [None]
